FAERS Safety Report 18481451 (Version 5)
Quarter: 2020Q4

REPORT INFORMATION
  Report Type: Spontaneous
  Country: PL (occurrence: PL)
  Receive Date: 20201109
  Receipt Date: 20201224
  Transmission Date: 20210114
  Serious: Yes (Hospitalization, Other)
  Sender: FDA-Public Use
  Company Number: PL-TEVA-2020-PL-1847815

PATIENT
  Age: 61 Year
  Sex: Male
  Weight: 100 kg

DRUGS (18)
  1. ATORVASTATIN CALCIUM. [Suspect]
     Active Substance: ATORVASTATIN CALCIUM
     Indication: PRODUCT USED FOR UNKNOWN INDICATION
     Dosage: 20 MILLIGRAM DAILY;
     Route: 065
  2. VALSARTAN. [Suspect]
     Active Substance: VALSARTAN
     Indication: PRODUCT USED FOR UNKNOWN INDICATION
     Dosage: 160 MILLIGRAM DAILY;
     Route: 065
  3. EPLERENONE. [Suspect]
     Active Substance: EPLERENONE
     Indication: PRODUCT USED FOR UNKNOWN INDICATION
     Dosage: 50 MILLIGRAM DAILY;
     Route: 065
  4. SACUBITRIL,VALSARTAN [Suspect]
     Active Substance: SACUBITRIL\VALSARTAN
     Dosage: 97/103 UNSPECIFIED UNIT STARTED ON AN UNKNOWN DATE, AT A DOSAGE OF 200 MILLIGRAM, 2 IN 1 DAYS
     Route: 065
  5. SACUBITRIL,VALSARTAN [Suspect]
     Active Substance: SACUBITRIL\VALSARTAN
     Dosage: 24/26 MG STARTED ON AN UNKNOWN DATE, AT A DOSAGE OF 50 MILLIGRAM, 2 IN 1 DAYS
     Route: 065
  6. TORASEMIDE [Suspect]
     Active Substance: TORSEMIDE
     Route: 065
  7. METOPROLOL. [Suspect]
     Active Substance: METOPROLOL
     Indication: PRODUCT USED FOR UNKNOWN INDICATION
     Dosage: 47.5 MILLIGRAM DAILY;
     Route: 065
  8. TORASEMIDE [Suspect]
     Active Substance: TORSEMIDE
     Dosage: 20 MILLIGRAM DAILY;
     Route: 065
  9. TORASEMIDE [Suspect]
     Active Substance: TORSEMIDE
     Route: 065
  10. WARFARIN SODIUM. [Suspect]
     Active Substance: WARFARIN SODIUM
     Indication: PRODUCT USED FOR UNKNOWN INDICATION
     Dosage: DOSAGE OF UNIT DOSE UNKNOWN, UNKNOWN FREQUENCY (AS PER INR-INTERNATIONAL NORMALIZED RATIO)
     Route: 065
  11. APIXABAN [Suspect]
     Active Substance: APIXABAN
     Indication: PRODUCT USED FOR UNKNOWN INDICATION
     Dosage: A DOSAGE OF UNIT DOSE UNKNOWN, UNKNOWN FREQUENCY
     Route: 065
  12. POTASSIUM [Concomitant]
     Active Substance: POTASSIUM
  13. TORASEMIDE [Suspect]
     Active Substance: TORSEMIDE
     Indication: PRODUCT USED FOR UNKNOWN INDICATION
     Dosage: 20 UNKNOWN DAILY; A DOSAGE OF 10 (UNSPECIFIED UNIT), 2 IN 1 DAYS (DESCRIBED AS 10-10-0)
     Route: 065
  14. TORASEMIDE [Suspect]
     Active Substance: TORSEMIDE
     Dosage: 30 MILLIGRAM/MILLILITERS DAILY; (DESCRIBED AS 20-10-0)
     Route: 065
  15. PANTOPRAZOLE [Suspect]
     Active Substance: PANTOPRAZOLE
     Indication: PRODUCT USED FOR UNKNOWN INDICATION
     Dosage: 20 MILLIGRAM DAILY;
     Route: 065
  16. RIVAROXABAN [Suspect]
     Active Substance: RIVAROXABAN
     Indication: PRODUCT USED FOR UNKNOWN INDICATION
     Dosage: 20 MILLIGRAM DAILY;
     Route: 065
  17. SACUBITRIL,VALSARTAN [Suspect]
     Active Substance: SACUBITRIL\VALSARTAN
     Indication: PRODUCT USED FOR UNKNOWN INDICATION
     Dosage: 49/51 MG STARTED ON AN UNKNOWN DATE, UNKNOWN ROUTE, AT A DOSAGE OF 100 MILLIGRAM, 2 IN 1 DAYS
     Route: 065
  18. AMIODARONE [Suspect]
     Active Substance: AMIODARONE
     Indication: PRODUCT USED FOR UNKNOWN INDICATION
     Dosage: 200 MILLIGRAM DAILY;
     Route: 042

REACTIONS (12)
  - Glomerular filtration rate decreased [Unknown]
  - Contraindicated product administered [Unknown]
  - Blood creatinine increased [Unknown]
  - Heart rate increased [Recovered/Resolved]
  - Cardiac failure congestive [Recovering/Resolving]
  - Weight increased [Unknown]
  - Diarrhoea [Recovered/Resolved]
  - Oedema peripheral [Recovered/Resolved]
  - Aortic valve incompetence [Unknown]
  - Blood cholesterol abnormal [Unknown]
  - Inappropriate schedule of product administration [Unknown]
  - Off label use [Unknown]
